FAERS Safety Report 8393527-1 (Version None)
Quarter: 2012Q2

REPORT INFORMATION
  Report Type: 
  Country: None (occurrence: None)
  Receive Date: 20120529
  Receipt Date: 20120516
  Transmission Date: 20120825
  Serious: Yes (Hospitalization)
  Sender: FDA-Public Use
  Company Number: US-MYLANLABS-2012S1010182

PATIENT
  Age: 57 Year
  Sex: Female

DRUGS (7)
  1. TACROLIMUS [Suspect]
     Indication: IMMUNOSUPPRESSANT DRUG THERAPY
     Dosage: 1MG IN THE MORNING AND 1.5MG IN THE EVENING
     Route: 048
  2. AMLODIPINE BESYLATE [Concomitant]
     Indication: HYPERTENSION
     Dosage: 5-10MG DAILY
     Route: 065
  3. TACROLIMUS [Suspect]
     Route: 048
  4. TACROLIMUS [Suspect]
     Route: 048
  5. MYCOPHENOLATE MOFETIL [Concomitant]
     Indication: IMMUNOSUPPRESSANT DRUG THERAPY
     Route: 048
  6. LORAZEPAM [Concomitant]
     Route: 048
  7. PREDNISONE [Concomitant]
     Indication: IMMUNOSUPPRESSANT DRUG THERAPY
     Dosage: 5MG DAILY
     Route: 048

REACTIONS (5)
  - NEUROTOXICITY [None]
  - NEPHROPATHY TOXIC [None]
  - CATATONIA [None]
  - SYSTOLIC HYPERTENSION [None]
  - DRUG LEVEL ABOVE THERAPEUTIC [None]
